FAERS Safety Report 17325082 (Version 1)
Quarter: 2020Q1

REPORT INFORMATION
  Report Type: Spontaneous
  Country: US (occurrence: US)
  Receive Date: 20200125
  Receipt Date: 20200125
  Transmission Date: 20200409
  Serious: Yes (Death)
  Sender: FDA-Public Use
  Company Number: None

PATIENT
  Age: 58 Year
  Sex: Male
  Weight: 140.4 kg

DRUGS (5)
  1. CORLANOR [Suspect]
     Active Substance: IVABRADINE HYDROCHLORIDE
     Indication: CARDIAC FAILURE
     Route: 048
     Dates: start: 20191112, end: 20191113
  2. INSULIN [Concomitant]
     Active Substance: INSULIN NOS
  3. CPAP MACHINE [Concomitant]
  4. DIURETIC [Concomitant]
     Active Substance: UNSPECIFIED INGREDIENT
  5. COREG [Concomitant]
     Active Substance: CARVEDILOL

REACTIONS (4)
  - Myocardial infarction [None]
  - Fluid retention [None]
  - Blood pressure increased [None]
  - Heart rate increased [None]

NARRATIVE: CASE EVENT DATE: 20191113
